FAERS Safety Report 18928961 (Version 1)
Quarter: 2021Q1

REPORT INFORMATION
  Report Type: Spontaneous
  Country: DE (occurrence: DE)
  Receive Date: 20210223
  Receipt Date: 20210223
  Transmission Date: 20210420
  Serious: Yes (Death, Other)
  Sender: FDA-Public Use
  Company Number: NVSC2021DE041460

PATIENT
  Age: 7 Year
  Sex: Male

DRUGS (8)
  1. MORPHINE SULFATE. [Suspect]
     Active Substance: MORPHINE SULFATE
     Indication: FLANK PAIN
     Dosage: UNK (MAX 15 MCG/KG PER HOUR)
     Route: 042
  2. ACICLOVIR [Suspect]
     Active Substance: ACYCLOVIR
     Indication: INFECTION PROPHYLAXIS
     Dosage: UNK
     Route: 065
  3. GENTAMICIN. [Suspect]
     Active Substance: GENTAMICIN
     Indication: INFECTION PROPHYLAXIS
     Dosage: UNK
     Route: 065
  4. TEICOPLANIN [Suspect]
     Active Substance: TEICOPLANIN
     Indication: INFECTION PROPHYLAXIS
     Dosage: UNK
     Route: 065
  5. BLINATUMOMAB [Suspect]
     Active Substance: BLINATUMOMAB
     Indication: ACUTE LYMPHOCYTIC LEUKAEMIA
     Dosage: UNK
     Route: 065
  6. CASPOFUNGIN [Suspect]
     Active Substance: CASPOFUNGIN
     Indication: INFECTION PROPHYLAXIS
     Dosage: 50 MG, QD
     Route: 065
  7. MEROPENEM. [Suspect]
     Active Substance: MEROPENEM
     Indication: INFECTION PROPHYLAXIS
     Dosage: UNK
     Route: 065
  8. CEFTRIAXONE. [Suspect]
     Active Substance: CEFTRIAXONE
     Indication: INFECTION PROPHYLAXIS
     Dosage: UNK
     Route: 065

REACTIONS (23)
  - Systemic mycosis [Fatal]
  - Acute respiratory failure [Fatal]
  - Cerebral haemorrhage [Fatal]
  - Gastrointestinal injury [Fatal]
  - Heart injury [Fatal]
  - Renal injury [Fatal]
  - Muscle injury [Fatal]
  - C-reactive protein increased [Fatal]
  - Endocarditis [Fatal]
  - Cardiac ventricular thrombosis [Fatal]
  - Cardiac failure [Fatal]
  - Full blood count decreased [Fatal]
  - Liver injury [Fatal]
  - Embolism [Fatal]
  - Overdose [Fatal]
  - Condition aggravated [Fatal]
  - Bone marrow failure [Fatal]
  - Pain [Fatal]
  - Somnolence [Fatal]
  - Cerebrovascular disorder [Fatal]
  - Pulmonary embolism [Fatal]
  - Intracranial pressure increased [Fatal]
  - Brain herniation [Fatal]
